FAERS Safety Report 4550888-9 (Version None)
Quarter: 2004Q4

REPORT INFORMATION
  Report Type: 
  Country: None (occurrence: None)
  Receive Date: 20041217
  Receipt Date: 20040910
  Transmission Date: 20050328
  Serious: No
  Sender: FDA-Public Use
  Company Number: 2004-BP-08212BP

PATIENT
  Age: 82 Year
  Sex: Male
  Weight: 87.1 kg

DRUGS (9)
  1. SPIRIVA [Suspect]
     Indication: CHRONIC OBSTRUCTIVE AIRWAYS DISEASE
     Dosage: 18 MCG ( 18  MCG, 1 INHALE DAILY), IH
     Route: 055
     Dates: start: 20040801, end: 20040910
  2. MINOXYCLINE (MINOCYCLINE) [Concomitant]
  3. GENTEAL (HYPROMELLOSE) [Concomitant]
  4. SEREVENT [Concomitant]
  5. FLOMAX [Concomitant]
  6. LIPITOR [Concomitant]
  7. HYDROCHLORATHIAZIDE (HYDROCHLOROTHIAZIDE) [Concomitant]
  8. ACETAMINOPHEN [Concomitant]
  9. ASPIRIN [Concomitant]

REACTIONS (5)
  - EYE PAIN [None]
  - HEART RATE INCREASED [None]
  - HEART RATE IRREGULAR [None]
  - HYPERHIDROSIS [None]
  - VISION BLURRED [None]
